FAERS Safety Report 15536341 (Version 1)
Quarter: 2018Q4

REPORT INFORMATION
  Report Type: Spontaneous
  Country: CA (occurrence: CA)
  Receive Date: 20181021
  Receipt Date: 20181021
  Transmission Date: 20190205
  Serious: Yes (Other)
  Sender: FDA-Public Use
  Company Number: None

PATIENT
  Age: 79 Year
  Sex: Male
  Weight: 81 kg

DRUGS (3)
  1. VITALUX [Concomitant]
     Active Substance: MINERALS\VITAMINS
  2. TAMSULOSIN HCL [Suspect]
     Active Substance: TAMSULOSIN HYDROCHLORIDE
     Indication: NEPHROLITHIASIS
     Dosage: ?          QUANTITY:30 CAPSULE(S);?
     Route: 048
     Dates: start: 20180925, end: 20181011
  3. CENTRUM [Concomitant]
     Active Substance: VITAMINS

REACTIONS (4)
  - Pain [None]
  - Therapy cessation [None]
  - Blood urine present [None]
  - Nephrolithiasis [None]

NARRATIVE: CASE EVENT DATE: 20180925
